FAERS Safety Report 9845474 (Version 1)
Quarter: 2014Q1

REPORT INFORMATION
  Report Type: Spontaneous
  Country: US (occurrence: None)
  Receive Date: 20140123
  Receipt Date: 20140123
  Transmission Date: 20141002
  Serious: Yes (Hospitalization)
  Sender: FDA-Public Use
  Company Number: CL-548-2014

PATIENT
  Age: 45 Year
  Sex: Female

DRUGS (2)
  1. LEVOFLOXACIN [Suspect]
     Indication: SINUSITIS
     Route: 048
  2. HYDROCORTISONE (CORTRIL TABLET) [Suspect]
     Indication: POSTPARTUM HYPOPITUITARISM
     Route: 048

REACTIONS (5)
  - Mental disorder [None]
  - Nervous system disorder [None]
  - Rapid correction of hyponatraemia [None]
  - Adverse reaction [None]
  - Ill-defined disorder [None]
